FAERS Safety Report 4515484-8 (Version None)
Quarter: 2004Q4

REPORT INFORMATION
  Report Type: 
  Country: None (occurrence: None)
  Receive Date: 20041126
  Receipt Date: 20041116
  Transmission Date: 20050328
  Serious: Yes (Hospitalization)
  Sender: FDA-Public Use
  Company Number: 800182

PATIENT
  Age: 72 Year
  Sex: Female
  Weight: 78 kg

DRUGS (17)
  1. DIANEAL [Suspect]
     Indication: PERITONEAL DIALYSIS
     Dosage: 10 L; QD; INTRAPERITONEAL
     Route: 033
     Dates: start: 20030619
  2. NORVASC [Concomitant]
  3. COREG [Concomitant]
  4. CARDURA [Concomitant]
  5. ZOCOR [Concomitant]
  6. BUMEX [Concomitant]
  7. PHOSLO [Concomitant]
  8. PLAVIX [Concomitant]
  9. FOLIC ACID [Concomitant]
  10. MULTIVITAMIN [Concomitant]
  11. NEPHROCAPS [Concomitant]
  12. COLACE [Concomitant]
  13. SENOKOT [Concomitant]
  14. POTASSIUM CHLORIDE [Concomitant]
  15. GLUCOTROL [Concomitant]
  16. EPOGEN [Concomitant]
  17. IRON [Concomitant]

REACTIONS (2)
  - CATHETER RELATED COMPLICATION [None]
  - MEDICAL DEVICE COMPLICATION [None]
